FAERS Safety Report 9303227 (Version 1)
Quarter: 2012Q4

REPORT INFORMATION
  Report Type: 
  Country: GB (occurrence: None)
  Receive Date: 20121203
  Receipt Date: 20121203
  Transmission Date: 20130627
  Serious: Yes (Hospitalization)
  Sender: FDA-Public Use
  Company Number: AUR-APL-2012-04796

PATIENT
  Age: 5 Month
  Sex: Female

DRUGS (2)
  1. CETIRIZINE (CETIRIZINE) [Suspect]
     Indication: DRUG USE FOR UNKNOWN INDICATION
     Dates: start: 20120417, end: 20120422
  2. RANITIDINE (RANITIDINE) [Suspect]
     Indication: DRUG USE FOR UNKNOWN INDICATION
     Dosage: (1 ml, 3 in 1 D)
     Route: 048

REACTIONS (7)
  - Decreased appetite [None]
  - Gastric ulcer [None]
  - Product odour abnormal [None]
  - Hypersensitivity [None]
  - Feeding disorder of infancy or early childhood [None]
  - Product substitution issue [None]
  - Product quality issue [None]
